FAERS Safety Report 6222851-3 (Version None)
Quarter: 2009Q2

REPORT INFORMATION
  Report Type: 
  Country: None (occurrence: None)
  Receive Date: 20090611
  Receipt Date: 20090610
  Transmission Date: 20091009
  Serious: Yes (Hospitalization)
  Sender: FDA-Public Use
  Company Number: B0578112A

PATIENT
  Age: 81 Year
  Sex: Female

DRUGS (5)
  1. PAROXETINE HCL [Suspect]
     Route: 048
     Dates: start: 20090227, end: 20090301
  2. COTAREG [Suspect]
     Dosage: 160MG PER DAY
     Route: 065
     Dates: end: 20090301
  3. NEO-MERCAZOLE TAB [Concomitant]
     Dosage: 10MG PER DAY
     Route: 065
  4. LIPANTHYL [Concomitant]
     Dosage: 200MG PER DAY
     Route: 065
  5. CEPHYL [Concomitant]
     Route: 065

REACTIONS (6)
  - ANKLE FRACTURE [None]
  - FALL [None]
  - HYPONATRAEMIA [None]
  - JOINT INJURY [None]
  - LOSS OF CONSCIOUSNESS [None]
  - MALAISE [None]
